FAERS Safety Report 22245223 (Version 2)
Quarter: 2023Q2

REPORT INFORMATION
  Report Type: Spontaneous
  Country: US (occurrence: US)
  Receive Date: 20230424
  Receipt Date: 20230526
  Transmission Date: 20230722
  Serious: Yes (Other)
  Sender: FDA-Public Use
  Company Number: US-JNJFOC-20230431313

PATIENT
  Sex: Male
  Weight: 123.49 kg

DRUGS (4)
  1. INVEGA SUSTENNA [Suspect]
     Active Substance: PALIPERIDONE PALMITATE
     Indication: Schizophrenia
     Route: 030
     Dates: start: 2020
  2. INVEGA SUSTENNA [Suspect]
     Active Substance: PALIPERIDONE PALMITATE
  3. INVEGA SUSTENNA [Suspect]
     Active Substance: PALIPERIDONE PALMITATE
  4. INVEGA [Suspect]
     Active Substance: PALIPERIDONE
     Indication: Schizophrenia
     Route: 048

REACTIONS (13)
  - Depressed level of consciousness [Unknown]
  - Cerebrovascular accident [Unknown]
  - Renal impairment [Unknown]
  - Weight increased [Unknown]
  - Weight decreased [Unknown]
  - Sexual dysfunction [Unknown]
  - Inflammation [Unknown]
  - Dermatitis contact [Unknown]
  - Treatment noncompliance [Unknown]
  - Drug ineffective [Unknown]
  - Fatigue [Unknown]
  - Nasal turbinate hypertrophy [Unknown]
  - Skin disorder [Unknown]
